FAERS Safety Report 6231191-8 (Version None)
Quarter: 2009Q2

REPORT INFORMATION
  Report Type: 
  Country: None (occurrence: None)
  Receive Date: 20090616
  Receipt Date: 20090610
  Transmission Date: 20091009
  Serious: Yes (Death, Life-Threatening, Hospitalization, Disabling, Other)
  Sender: FDA-Public Use
  Company Number: US-BAYER-200923054GPV

PATIENT
  Age: 54 Year
  Sex: Male
  Weight: 52 kg

DRUGS (7)
  1. SORAFENIB [Suspect]
     Indication: HEPATIC NEOPLASM MALIGNANT
     Dosage: TOTAL DAILY DOSE: 800 MG
     Route: 048
     Dates: start: 20090115, end: 20090405
  2. BOOSTER SANGOBION [Suspect]
     Indication: DRUG USE FOR UNKNOWN INDICATION
     Route: 065
  3. CIPROFLOXACIN [Concomitant]
     Indication: DRUG USE FOR UNKNOWN INDICATION
     Route: 065
     Dates: start: 20090402
  4. FRUSEMIDE [Concomitant]
     Indication: ASCITES
     Dosage: TOTAL DAILY DOSE: 20 MG
     Route: 065
     Dates: start: 20090407, end: 20090421
  5. SPIRONOLACTONE [Concomitant]
     Indication: ASCITES
     Dosage: TOTAL DAILY DOSE: 100 MG
     Route: 065
     Dates: start: 20090407, end: 20090421
  6. PREDNISOLONE [Concomitant]
     Indication: GENERAL PHYSICAL HEALTH DETERIORATION
     Dosage: TOTAL DAILY DOSE: 20 MG
     Route: 065
     Dates: start: 20090407, end: 20090421
  7. OMEPRAZOLE [Concomitant]
     Indication: PROPHYLAXIS
     Dosage: TOTAL DAILY DOSE: 20 MG
     Route: 065
     Dates: start: 20090407, end: 20090421

REACTIONS (6)
  - FATIGUE [None]
  - GAIT DISTURBANCE [None]
  - HEPATIC FAILURE [None]
  - HEPATIC NEOPLASM MALIGNANT [None]
  - JAUNDICE [None]
  - OEDEMA [None]
